FAERS Safety Report 8833614 (Version 1)
Quarter: 2012Q4

REPORT INFORMATION
  Report Type: 
  Country: US (occurrence: US)
  Receive Date: 20121010
  Receipt Date: 20121010
  Transmission Date: 20130627
  Serious: No
  Sender: FDA-Public Use
  Company Number: US-009507513-1209USA005578

PATIENT
  Age: 22 Year
  Sex: Female
  Weight: 126.98 kg

DRUGS (2)
  1. IMPLANON [Suspect]
     Indication: CONTRACEPTION
     Dosage: UNK
     Dates: start: 20120911
  2. VITAMIN D (UNSPECIFIED) [Concomitant]

REACTIONS (1)
  - Oedema peripheral [Not Recovered/Not Resolved]
